FAERS Safety Report 24712721 (Version 1)
Quarter: 2024Q4

REPORT INFORMATION
  Report Type: Spontaneous
  Country: ES (occurrence: ES)
  Receive Date: 20241209
  Receipt Date: 20241209
  Transmission Date: 20250115
  Serious: Yes (Hospitalization)
  Sender: TEVA
  Company Number: None

PATIENT
  Age: 57 Year
  Sex: Male

DRUGS (5)
  1. IBUPROFEN [Suspect]
     Active Substance: IBUPROFEN
     Indication: Arthralgia
     Dosage: IBUPROFENE (1769A)
     Route: 048
     Dates: start: 202403, end: 20240714
  2. OMEPRAZOLE [Concomitant]
     Active Substance: OMEPRAZOLE
     Indication: Product used for unknown indication
     Dosage: HARD GASTRORESISTANT CAPSULES EFG, 56 CAPSULES
     Route: 048
     Dates: start: 20230605
  3. LORAZEPAM [Concomitant]
     Active Substance: LORAZEPAM
     Indication: Product used for unknown indication
     Dosage: TABLETS EFG, 25 TABLETS
     Route: 048
     Dates: start: 20210714
  4. SIMVASTATINA CINFA [Concomitant]
     Indication: Product used for unknown indication
     Dosage: FILM-COATED TABLETS EFG, 28 TABLETS
     Route: 048
     Dates: start: 20191119, end: 20240719
  5. VALSARTAN CINFA [Concomitant]
     Indication: Product used for unknown indication
     Dosage: 28 TABLETS
     Route: 048
     Dates: start: 20200922

REACTIONS (2)
  - Hepatocellular injury [Recovered/Resolved]
  - Pancreatitis acute [Recovered/Resolved]

NARRATIVE: CASE EVENT DATE: 20240714
